FAERS Safety Report 9613567 (Version 1)
Quarter: 2013Q4

REPORT INFORMATION
  Report Type: Spontaneous
  Country: GR (occurrence: GR)
  Receive Date: 20131010
  Receipt Date: 20131010
  Transmission Date: 20140711
  Serious: Yes (Other)
  Sender: FDA-Public Use
  Company Number: GR-PFIZER INC-2013286015

PATIENT
  Age: 40 Year
  Sex: Female

DRUGS (7)
  1. REVATIO [Suspect]
     Indication: PULMONARY HYPERTENSION
     Dosage: 20 MG X 20 TABLETS PER DAY
  2. REMODULIN [Concomitant]
     Dosage: UNK
     Route: 042
  3. TRACLEER [Concomitant]
     Dosage: 125 UNK, UNK
  4. SINTROM [Concomitant]
     Dosage: UNK
  5. FRUMIL [Concomitant]
  6. ALDACTONE [Concomitant]
     Dosage: UNK
  7. THYROHORMONE [Concomitant]
     Dosage: 0.1 MG, UNK

REACTIONS (5)
  - Incorrect dose administered [Unknown]
  - Syncope [Unknown]
  - Retinal haemorrhage [Unknown]
  - Serum ferritin decreased [Unknown]
  - Alopecia [Unknown]
